FAERS Safety Report 6292833-4 (Version None)
Quarter: 2009Q3

REPORT INFORMATION
  Report Type: 
  Country: None (occurrence: None)
  Receive Date: 20090731
  Receipt Date: 20090720
  Transmission Date: 20100115
  Serious: Yes (Other)
  Sender: FDA-Public Use
  Company Number: PHHY2009BR30485

PATIENT
  Sex: Female
  Weight: 74 kg

DRUGS (8)
  1. TRILEPTAL [Suspect]
     Dosage: 1 TABLET IN THE MORNING
     Route: 048
  2. TRILEPTAL [Suspect]
     Dosage: 1 TAB IN MORNING AND HALF TAB IN AFTERNOON
     Route: 048
  3. TRILEPTAL [Suspect]
     Dosage: 1 TAB IN MORNING, HALF TAN IN AFTERNOON, AND 1 TAB IN NIGHT
  4. TRILEPTAL [Suspect]
     Dosage: 1 TABLET
     Dates: start: 20090717
  5. PANTOPRAZOLE SODIUM [Concomitant]
     Dosage: 1 DF, QD
     Route: 048
  6. DORMONID [Concomitant]
     Indication: INSOMNIA
     Dosage: 1 DF, QD
     Route: 048
     Dates: start: 20090501
  7. BUPROPION HYDROCHLORIDE [Concomitant]
     Indication: DEPRESSION
     Dosage: 1 DF, QD
     Route: 048
     Dates: start: 20090605
  8. FRONTAL [Concomitant]
     Indication: INSOMNIA
     Dosage: 1 DF, QD
     Route: 048
     Dates: start: 20090605

REACTIONS (11)
  - AGGRESSION [None]
  - DISORIENTATION [None]
  - DIZZINESS [None]
  - HYPERHIDROSIS [None]
  - IMPATIENCE [None]
  - MUSCULOSKELETAL PAIN [None]
  - NERVOUSNESS [None]
  - RESTLESSNESS [None]
  - SPEECH DISORDER [None]
  - TREATMENT NONCOMPLIANCE [None]
  - TREMOR [None]
